FAERS Safety Report 23931714 (Version 1)
Quarter: 2024Q2

REPORT INFORMATION
  Report Type: Spontaneous
  Country: FR (occurrence: FR)
  Receive Date: 20240603
  Receipt Date: 20240603
  Transmission Date: 20240716
  Serious: Yes (Hospitalization, Other)
  Sender: FDA-Public Use
  Company Number: None

PATIENT
  Age: 64 Year
  Sex: Male

DRUGS (11)
  1. VALGANCICLOVIR [Suspect]
     Active Substance: VALGANCICLOVIR
     Indication: Prophylaxis
     Dosage: 1 TEASPOON EVERY 2 DAYS (ODD DAYS)
     Route: 048
     Dates: start: 20210709, end: 20240408
  2. ALLOPURINOL [Suspect]
     Active Substance: ALLOPURINOL
     Indication: Gout
     Dosage: 1-0-0 ?DAILY DOSE: 1 DOSAGE FORM
     Route: 048
     Dates: start: 2019, end: 20240408
  3. TACROLIMUS [Suspect]
     Active Substance: TACROLIMUS
     Indication: Prophylaxis against transplant rejection
     Dosage: 2.5 MG  2X/D/1-0-1 ?DAILY DOSE: 2 DOSAGE FORM
     Dates: start: 20190915
  4. ASPIRIN [Suspect]
     Active Substance: ASPIRIN
     Dosage: 0-1-0 ?DAILY DOSE: 1 DOSAGE FORM
     Dates: start: 201909
  5. AMLODIPINE [Suspect]
     Active Substance: AMLODIPINE BESYLATE
     Dosage: 2-0-0 ?DAILY DOSE: 2 DOSAGE FORM
     Dates: start: 201909
  6. PERINDOPRIL [Suspect]
     Active Substance: PERINDOPRIL
     Dosage: 1-0-0 ?DAILY DOSE: 1 DOSAGE FORM
     Dates: start: 201909
  7. NEBIVOLOL [Suspect]
     Active Substance: NEBIVOLOL
     Dosage: 1-0-0 ?DAILY DOSE: 1 DOSAGE FORM
     Dates: start: 2021
  8. ATORVASTATIN [Suspect]
     Active Substance: ATORVASTATIN
     Dates: start: 2022
  9. ATORVASTATIN\EZETIMIBE [Suspect]
     Active Substance: ATORVASTATIN\EZETIMIBE
     Dosage: 0-0-1 ?DAILY DOSE: 1 DOSAGE FORM
     Dates: start: 202312
  10. LANTUS [Suspect]
     Active Substance: INSULIN GLARGINE
     Dosage: SLOW-ACTING INSULIN 6 IU IN THE MORNING?DAILY DOSE: 6 IU (INTERNATIONAL UNIT)
  11. NOVORAPID [Suspect]
     Active Substance: INSULIN ASPART
     Dosage: FAST-ACTING INSULIN 10 IU PER MEAL

REACTIONS (3)
  - Neutropenia [Not Recovered/Not Resolved]
  - Cyanosis [Unknown]
  - Anaemia [Unknown]

NARRATIVE: CASE EVENT DATE: 20210723
